FAERS Safety Report 6112378-1 (Version None)
Quarter: 2009Q1

REPORT INFORMATION
  Report Type: 
  Country: None (occurrence: None)
  Receive Date: 20090311
  Receipt Date: 20090311
  Transmission Date: 20090719
  Serious: Yes (Other)
  Sender: FDA-Public Use
  Company Number: None

PATIENT
  Age: 45 Year
  Sex: Female
  Weight: 47.6277 kg

DRUGS (2)
  1. METOPROLOL SUCCINATE [Suspect]
     Indication: HYPERTENSION
     Dosage: 100MG DAILY PO
     Route: 048
     Dates: start: 20071029, end: 20080129
  2. TOPROL-XL [Suspect]
     Indication: HYPERTENSION
     Dosage: 25MG  DAILY PO
     Route: 048
     Dates: start: 20081010, end: 20090310

REACTIONS (9)
  - ALOPECIA [None]
  - ATAXIA [None]
  - DYSPHAGIA [None]
  - HYPOAESTHESIA [None]
  - OROPHARYNGEAL PAIN [None]
  - PARAESTHESIA [None]
  - PARALYSIS [None]
  - WEIGHT INCREASED [None]
  - WHEEZING [None]
